FAERS Safety Report 7013287-6 (Version None)
Quarter: 2010Q3

REPORT INFORMATION
  Report Type: 
  Country: None (occurrence: None)
  Receive Date: 20100924
  Receipt Date: 20100913
  Transmission Date: 20110219
  Serious: Yes (Hospitalization)
  Sender: FDA-Public Use
  Company Number: PHHY2010DE61141

PATIENT
  Age: 83 Year
  Sex: Female

DRUGS (9)
  1. EXFORGE HCT [Suspect]
     Indication: HYPERTENSION
     Dosage: 2 TABLET DAILY
     Route: 048
     Dates: start: 20100808, end: 20100820
  2. RASILEZ [Suspect]
     Indication: HYPERTENSION
     Dosage: 1 TABLET DAILY
     Route: 048
     Dates: start: 20100808, end: 20100821
  3. BISOPROLOL FUMARATE [Concomitant]
     Indication: HYPERTENSION
     Dosage: 2 TABLETS
     Route: 048
     Dates: start: 19900101
  4. CYNT [Concomitant]
     Indication: HYPERTENSION
     Dosage: UNK
     Route: 048
     Dates: start: 20080101
  5. OPIPRAMOL [Concomitant]
     Indication: ANXIETY DISORDER
     Dosage: UNK
     Route: 048
     Dates: end: 20100820
  6. ARLEVERT [Concomitant]
     Indication: DIZZINESS
     Dosage: UNK
  7. PRAVASTATIN [Concomitant]
     Dosage: UNK
  8. PANTOPRAZOLE [Concomitant]
     Dosage: UNK
  9. IBUPROFEN [Concomitant]
     Indication: PAIN

REACTIONS (11)
  - ATROPHY [None]
  - BEDRIDDEN [None]
  - BLOOD CREATININE DECREASED [None]
  - BLOOD POTASSIUM DECREASED [None]
  - BLOOD UREA INCREASED [None]
  - CONFUSIONAL STATE [None]
  - HALLUCINATION [None]
  - HYPONATRAEMIA [None]
  - INAPPROPRIATE ANTIDIURETIC HORMONE SECRETION [None]
  - LACUNAR INFARCTION [None]
  - LEUKOARAIOSIS [None]
